FAERS Safety Report 8187564-X (Version None)
Quarter: 2012Q1

REPORT INFORMATION
  Report Type: 
  Country: None (occurrence: None)
  Receive Date: 20120302
  Receipt Date: 20120210
  Transmission Date: 20120608
  Serious: Yes (Hospitalization)
  Sender: FDA-Public Use
  Company Number: 1149852

PATIENT
  Age: 9 Year
  Sex: Male
  Weight: 29 kg

DRUGS (1)
  1. CARBOPLATIN [Suspect]
     Indication: BONE SARCOMA
     Dosage: 300 MG/M2, ONE, INTRAVENOUS 
4 MG/M2 X 1 DAY WEEKS 1, 5, 9, 13, 17 AND 21  INTRAVENOUS (NOT OTHERWIS
     Dates: start: 20111223, end: 20111223

REACTIONS (7)
  - GASTROENTERITIS [None]
  - FEELING ABNORMAL [None]
  - DEHYDRATION [None]
  - NEUTROPENIA [None]
  - THROMBOCYTOPENIA [None]
  - AZOTAEMIA [None]
  - DIARRHOEA [None]
